FAERS Safety Report 22313448 (Version 21)
Quarter: 2024Q1

REPORT INFORMATION
  Report Type: Spontaneous
  Country: GB (occurrence: GB)
  Receive Date: 20230512
  Receipt Date: 20240325
  Transmission Date: 20240410
  Serious: Yes (Hospitalization, Other)
  Sender: FDA-Public Use
  Company Number: GB-ROCHE-3180009

PATIENT
  Age: 59 Year
  Weight: 51 kg

DRUGS (38)
  1. CYCLOPHOSPHAMIDE [Suspect]
     Active Substance: CYCLOPHOSPHAMIDE
     Indication: Follicular lymphoma
     Dosage: UNK, ON 17JUN2022, LAST DOSE OF STUDY DRUG
     Route: 065
     Dates: start: 20211111, end: 20220617
  2. CYCLOPHOSPHAMIDE [Suspect]
     Active Substance: CYCLOPHOSPHAMIDE
     Dosage: UNK, START DATE: 11-NOV-2021
     Route: 065
  3. CYCLOPHOSPHAMIDE [Suspect]
     Active Substance: CYCLOPHOSPHAMIDE
     Dosage: ON 17/JUN/2022, THE PATIENT RECEIVED LAST DOSE OF STUDY DRUG, START DATE: 11-NOV-2021
     Route: 065
     Dates: end: 20220617
  4. CYCLOPHOSPHAMIDE [Suspect]
     Active Substance: CYCLOPHOSPHAMIDE
     Dosage: UNK, START DATE: 17-JUN-2022
     Route: 065
  5. CYCLOPHOSPHAMIDE [Suspect]
     Active Substance: CYCLOPHOSPHAMIDE
     Dosage: UNK
     Route: 065
     Dates: start: 20220617
  6. CYCLOPHOSPHAMIDE [Suspect]
     Active Substance: CYCLOPHOSPHAMIDE
     Dosage: UNK
     Route: 065
     Dates: start: 20211111
  7. LENALIDOMIDE [Suspect]
     Active Substance: LENALIDOMIDE
     Indication: Follicular lymphoma
     Dosage: UNK
     Route: 065
  8. LENALIDOMIDE [Suspect]
     Active Substance: LENALIDOMIDE
     Dosage: 3 MG, 1X/DAY, CUMULATIVE DOSE: 800 MG
     Route: 065
  9. LENALIDOMIDE [Suspect]
     Active Substance: LENALIDOMIDE
     Dosage: 20 MG, ONCE DAILY FOR 1 - 21 DAYS. ON 26MAR2023 LAST DOSE OF DRUG ADMINISTERED
     Route: 048
     Dates: start: 20220929, end: 20230326
  10. LENALIDOMIDE [Suspect]
     Active Substance: LENALIDOMIDE
     Dosage: 3 MILLIGRAM, QD,(3 MG, QD, CUMULATIVE DOSE: 800 MG)
     Route: 065
  11. LENALIDOMIDE [Suspect]
     Active Substance: LENALIDOMIDE
     Dosage: UNK UNK, QD, CUMULATIVE DOSE: 800 MG
     Route: 065
  12. LENALIDOMIDE [Suspect]
     Active Substance: LENALIDOMIDE
     Dosage: 3 MG, 1X/DAY, CUMULATIVE DOSE: 800 MG
     Route: 065
  13. LENALIDOMIDE [Suspect]
     Active Substance: LENALIDOMIDE
     Dosage: UNK UNK, QD, CUMULATIVE DOSE: 800 MG
     Route: 065
  14. LENALIDOMIDE [Suspect]
     Active Substance: LENALIDOMIDE
     Dosage: 3 MG, UNK UNK, QD, CUMULATIVE DOSE: 800 MG
     Route: 065
  15. LENALIDOMIDE [Suspect]
     Active Substance: LENALIDOMIDE
     Dosage: UNK UNK, QD, CUMULATIVE DOSE: 800 MG
     Route: 065
  16. OBINUTUZUMAB [Suspect]
     Active Substance: OBINUTUZUMAB
     Indication: Follicular lymphoma
     Dosage: 1000 MILLIGRAM, CYCLIC (ONCE IN 8 WEEK (ON 17/JUN/2022, THE PATIENT RECEIVED LAST DOSE OF STUDY DRUG
     Route: 042
     Dates: start: 20211111, end: 20220617
  17. OBINUTUZUMAB [Suspect]
     Active Substance: OBINUTUZUMAB
     Dosage: 1000 MG (EVERY 8 WEEKS) ON 17JUN2022, LAST DOSE/ON 05MAR2023, LAST DOSE PRIOR TO EVENT
     Route: 042
     Dates: start: 20211111, end: 20230305
  18. OBINUTUZUMAB [Suspect]
     Active Substance: OBINUTUZUMAB
     Dosage: 1000 MILLIGRAM, ONCE IN 8 WEEKS, START DATE: 05-MAR-2023
     Route: 042
  19. OBINUTUZUMAB [Suspect]
     Active Substance: OBINUTUZUMAB
     Dosage: 1000 MILLIGRAM, ONCE IN 8 WEEK (ON 17/JUN/2022, THE PATIENT RECEIVED LAST DOSE OF STUDY DRUG), START
     Route: 042
     Dates: end: 20220617
  20. OBINUTUZUMAB [Suspect]
     Active Substance: OBINUTUZUMAB
     Dosage: 1000 MG (EVERY 8 WEEKS) ON 17JUN2022, LAST DOSE/ON 05MAR2023, LAST DOSE PRIOR TO EVENT, START DATE:
     Route: 042
     Dates: end: 20230305
  21. OBINUTUZUMAB [Suspect]
     Active Substance: OBINUTUZUMAB
     Dosage: 1000 MILLIGRAM, ONCE IN 8 WEEKS
     Route: 042
     Dates: start: 20230305
  22. PREDNISONE [Suspect]
     Active Substance: PREDNISONE
     Indication: Follicular lymphoma
     Dosage: UNK, ON 17/JUN/2022,LAST DOSE OF STUDY DRUG
     Route: 065
     Dates: start: 20211111, end: 20220617
  23. PREDNISONE [Suspect]
     Active Substance: PREDNISONE
     Dosage: UNK
     Route: 065
     Dates: start: 20220617
  24. PREDNISONE [Suspect]
     Active Substance: PREDNISONE
     Dosage: UNK, START DATE: 17-JUN-2022
     Route: 065
     Dates: start: 20220617
  25. PREDNISONE [Suspect]
     Active Substance: PREDNISONE
     Dosage: ON 17/JUN/2022, THE PATIENT RECEIVED LAST DOSE OF STUDY DRUG., START DATE: 11-NOV-2021
     Route: 065
     Dates: end: 20220617
  26. VINCRISTINE SULFATE [Suspect]
     Active Substance: VINCRISTINE SULFATE
     Indication: Follicular lymphoma
     Dosage: UNK, ON 17JUN2022, LAST DOSE OF STUDY DRUG, ROUTE OF ADMIN (FREE TEXT): UNKNOWN ROUTE
     Route: 065
     Dates: start: 20211111
  27. VINCRISTINE [Suspect]
     Active Substance: VINCRISTINE
     Dosage: ON 17/JUN/2022, THE PATIENT RECEIVED LAST DOSE OF STUDY DRUG
     Route: 065
     Dates: end: 20220617
  28. VINCRISTINE [Suspect]
     Active Substance: VINCRISTINE
     Dosage: UNK, START DATE: 17-JUN-2022
     Route: 065
  29. VINCRISTINE [Suspect]
     Active Substance: VINCRISTINE
     Dosage: ON 17/JUN/2022, THE PATIENT RECEIVED LAST DOSE OF STUDY DRUG, START DATE: 11-NOV-2021
     Route: 065
     Dates: start: 20220611, end: 20220617
  30. VINCRISTINE [Suspect]
     Active Substance: VINCRISTINE
     Dosage: UNK
     Route: 065
     Dates: start: 20211111
  31. VINCRISTINE [Suspect]
     Active Substance: VINCRISTINE
     Dosage: UNK
     Route: 065
     Dates: start: 20220617
  32. VINCRISTINE [Suspect]
     Active Substance: VINCRISTINE
     Dosage: UNK, START DATE: 11-NOV-2021
     Route: 065
  33. PIPERACILLIN SODIUM\TAZOBACTAM SODIUM [Concomitant]
     Active Substance: PIPERACILLIN SODIUM\TAZOBACTAM SODIUM
     Indication: Product used for unknown indication
     Dosage: 4.5 G (PERSISTENT 1 WEEK; START DATE: 27MAR2023, INTRAVENOUS DRIP)
     Route: 042
  34. PIPERACILLIN SODIUM\TAZOBACTAM SODIUM [Concomitant]
     Active Substance: PIPERACILLIN SODIUM\TAZOBACTAM SODIUM
     Dosage: 4.5 GRAM
     Route: 042
     Dates: start: 20220820
  35. PIPERACILLIN SODIUM\TAZOBACTAM SODIUM [Concomitant]
     Active Substance: PIPERACILLIN SODIUM\TAZOBACTAM SODIUM
     Dosage: 4.5 G (PERSISTENT 1 WEEK)
     Route: 042
     Dates: start: 20230327
  36. PIPERACILLIN SODIUM\TAZOBACTAM SODIUM [Concomitant]
     Active Substance: PIPERACILLIN SODIUM\TAZOBACTAM SODIUM
     Dosage: 4.5 G (PERSISTENT 1 WEEK, START DATE: 27-MAR-2023)
     Route: 042
  37. PIPERACILLIN SODIUM\TAZOBACTAM SODIUM [Concomitant]
     Active Substance: PIPERACILLIN SODIUM\TAZOBACTAM SODIUM
     Dosage: 4.5 G(PERSISTENT 1 WEEK; START DATE: 27-MAR-2023, INTRAVENOUS DRIP)
     Route: 042
  38. PIPERACILLIN SODIUM\TAZOBACTAM SODIUM [Concomitant]
     Active Substance: PIPERACILLIN SODIUM\TAZOBACTAM SODIUM
     Dosage: 4.5 GRAM (INTRAVENOUS DRIP)
     Route: 042
     Dates: start: 20220820

REACTIONS (10)
  - Lethargy [Unknown]
  - Malaise [Unknown]
  - Neutropenia [Recovering/Resolving]
  - COVID-19 [Recovered/Resolved]
  - Neutropenic sepsis [Recovering/Resolving]
  - Neutropenic sepsis [Recovering/Resolving]
  - C-reactive protein increased [Unknown]
  - Pneumonia [Unknown]
  - Lethargy [Unknown]
  - C-reactive protein increased [Unknown]

NARRATIVE: CASE EVENT DATE: 20220820
